FAERS Safety Report 4494190-2 (Version None)
Quarter: 2004Q4

REPORT INFORMATION
  Report Type: 
  Country: None (occurrence: None)
  Receive Date: 20041102
  Receipt Date: 20041020
  Transmission Date: 20050328
  Serious: Yes (Death)
  Sender: FDA-Public Use
  Company Number: 2004080334

PATIENT
  Age: 57 Year
  Sex: Male

DRUGS (1)
  1. SULPERAZON (CEFOPERAZONE, SULBACTAM) [Suspect]
     Indication: ILL-DEFINED DISORDER
     Dosage: 4 GRAM, INTRAVENOUS
     Route: 042
     Dates: start: 20041020, end: 20041020

REACTIONS (3)
  - ANAPHYLACTIC SHOCK [None]
  - CHEST DISCOMFORT [None]
  - CYANOSIS [None]
